FAERS Safety Report 24161148 (Version 1)
Quarter: 2024Q3

REPORT INFORMATION
  Report Type: Spontaneous
  Country: US (occurrence: US)
  Receive Date: 20240801
  Receipt Date: 20240801
  Transmission Date: 20241016
  Serious: Yes (Hospitalization)
  Sender: MERCK
  Company Number: US-MERCK-0906USA00573

PATIENT
  Sex: Male

DRUGS (8)
  1. EMEND [Suspect]
     Active Substance: APREPITANT
     Dosage: 125 MG, UNK
     Route: 048
  2. EMEND [Suspect]
     Active Substance: APREPITANT
     Dosage: 80 MG, UNK
     Route: 048
  3. IFEX [Interacting]
     Active Substance: IFOSFAMIDE
  4. ETOPOSIDE [Suspect]
     Active Substance: ETOPOSIDE
  5. VINCRISTINE SULFATE [Suspect]
     Active Substance: VINCRISTINE SULFATE
  6. CYTARABINE [Suspect]
     Active Substance: CYTARABINE
  7. ZOFRAN [Concomitant]
     Active Substance: ONDANSETRON HYDROCHLORIDE
  8. ANIMAL UNSPECIFIED [Concomitant]
     Dosage: UNK

REACTIONS (5)
  - Encephalopathy [Recovered/Resolved]
  - Neurotoxicity [Recovered/Resolved]
  - Pancytopenia [Recovered/Resolved]
  - Renal failure [Unknown]
  - Drug interaction [Unknown]

NARRATIVE: CASE EVENT DATE: 20090429
